FAERS Safety Report 9983740 (Version 2)
Quarter: 2014Q2

REPORT INFORMATION
  Report Type: Spontaneous
  Country: US (occurrence: US)
  Receive Date: 20140307
  Receipt Date: 20140604
  Transmission Date: 20141212
  Serious: Yes (Other)
  Sender: FDA-Public Use
  Company Number: US-SA-2014SA028736

PATIENT
  Sex: 0

DRUGS (1)
  1. LOVENOX [Suspect]
     Route: 065

REACTIONS (2)
  - Gastric cancer [Unknown]
  - Deep vein thrombosis [Unknown]
